FAERS Safety Report 20417003 (Version 1)
Quarter: 2022Q1

REPORT INFORMATION
  Report Type: Spontaneous
  Country: US (occurrence: None)
  Receive Date: 20220202
  Receipt Date: 20220202
  Transmission Date: 20220424
  Serious: No
  Sender: FDA-Public Use
  Company Number: None

PATIENT
  Sex: Female

DRUGS (1)
  1. MAKENA [Suspect]
     Active Substance: HYDROXYPROGESTERONE CAPROATE
     Indication: Postponement of preterm delivery
     Dosage: FREQUENCY : WEEKLY;?
     Route: 058
     Dates: start: 20220101

REACTIONS (2)
  - Drug hypersensitivity [None]
  - Injection site reaction [None]
